FAERS Safety Report 24771103 (Version 3)
Quarter: 2025Q1

REPORT INFORMATION
  Report Type: Spontaneous
  Country: JP (occurrence: JP)
  Receive Date: 20241224
  Receipt Date: 20250120
  Transmission Date: 20250409
  Serious: Yes (Death, Hospitalization, Other)
  Sender: MERCK
  Company Number: JP-MSD-2412JPN003300J

PATIENT
  Age: 67 Year
  Sex: Female

DRUGS (2)
  1. KEYTRUDA [Suspect]
     Active Substance: PEMBROLIZUMAB
     Indication: Uterine cancer
     Dosage: 300 MILLIGRAM, Q3W
     Route: 041
     Dates: start: 20240904, end: 20241203
  2. LENVATINIB MESYLATE [Suspect]
     Active Substance: LENVATINIB MESYLATE
     Indication: Uterine cancer
     Dosage: 10 MILLIGRAM, QD
     Route: 048
     Dates: start: 20240904, end: 20241203

REACTIONS (6)
  - Cytokine release syndrome [Fatal]
  - Encephalitis [Fatal]
  - Myocarditis [Fatal]
  - Physical deconditioning [Unknown]
  - Overdose [Unknown]
  - Product use issue [Unknown]

NARRATIVE: CASE EVENT DATE: 20240904
